FAERS Safety Report 9549664 (Version 3)
Quarter: 2014Q3

REPORT INFORMATION
  Report Type: Spontaneous
  Country: US (occurrence: US)
  Receive Date: 20130924
  Receipt Date: 20140808
  Transmission Date: 20150326
  Serious: Yes (Hospitalization, Disabling, Other)
  Sender: FDA-Public Use
  Company Number: US-009507513-1309USA011012

PATIENT
  Sex: Female

DRUGS (1)
  1. NUVARING [Suspect]
     Active Substance: ETHINYL ESTRADIOL\ETONOGESTREL
     Indication: PRODUCT USED FOR UNKNOWN INDICATION
     Dosage: UNK
     Route: 067
     Dates: start: 201206, end: 201209

REACTIONS (9)
  - Sputum discoloured [Unknown]
  - Asthma [Unknown]
  - Colitis [Unknown]
  - Pneumonia [Unknown]
  - Pulmonary embolism [Unknown]
  - Exposure to mould [Unknown]
  - Migraine [Unknown]
  - Productive cough [Unknown]
  - Deep vein thrombosis [Unknown]

NARRATIVE: CASE EVENT DATE: 201207
